FAERS Safety Report 8425771-9 (Version None)
Quarter: 2012Q2

REPORT INFORMATION
  Report Type: 
  Country: None (occurrence: None)
  Receive Date: 20120531
  Receipt Date: 20120522
  Transmission Date: 20120825
  Serious: Yes (Hospitalization)
  Sender: FDA-Public Use
  Company Number: 2012SP027563

PATIENT
  Age: 45 Year
  Sex: Male
  Weight: 74 kg

DRUGS (10)
  1. LOXONIN [Concomitant]
  2. ZOLPIDEM [Concomitant]
  3. ALLEGRA [Concomitant]
  4. GASMOTIN [Concomitant]
  5. PEG-INTRON [Suspect]
     Indication: HEPATITIS C
     Dosage: 1.5 MCG/KG;QW;SC
     Route: 058
     Dates: end: 20120425
  6. TELAVIC (ANTIVIRALS NOS) [Suspect]
     Indication: HEPATITIS C
     Dosage: 2250 MG;QD;PO
     Route: 048
     Dates: start: 20120308, end: 20120427
  7. PREDNISOLONE [Concomitant]
  8. REBETOL [Suspect]
     Indication: HEPATITIS C
     Dosage: 800 MG;QD;PO
     Route: 048
     Dates: end: 20120502
  9. ALLOPURINOL [Concomitant]
  10. LANSOPRAZOLE [Concomitant]

REACTIONS (7)
  - GENERALISED ERYTHEMA [None]
  - PAPULE [None]
  - BLISTER [None]
  - MOUTH ULCERATION [None]
  - PRURITUS [None]
  - CONJUNCTIVAL HYPERAEMIA [None]
  - ORAL MUCOSA EROSION [None]
